FAERS Safety Report 5183941-X (Version None)
Quarter: 2006Q4

REPORT INFORMATION
  Report Type: 
  Country: None (occurrence: None)
  Receive Date: 20061220
  Receipt Date: 20060228
  Transmission Date: 20070319
  Serious: No
  Sender: FDA-Public Use
  Company Number: US-GLAXOSMITHKLINE-A0595635A

PATIENT
  Sex: Female

DRUGS (3)
  1. NICODERM CQ [Suspect]
  2. NICORETTE [Suspect]
  3. NICODERM CQ [Suspect]
     Dates: start: 20060109

REACTIONS (7)
  - APPLICATION SITE PRURITUS [None]
  - APPLICATION SITE SWELLING [None]
  - BLISTER [None]
  - HYPERSENSITIVITY [None]
  - NAUSEA [None]
  - OEDEMA PERIPHERAL [None]
  - PRURITUS [None]
